FAERS Safety Report 7133292 (Version 3)
Quarter: 2015Q2

REPORT INFORMATION
  Report Type: Spontaneous
  Country: JP (occurrence: None)
  Receive Date: 20090916
  Receipt Date: 20150608
  Transmission Date: 20150821
  Serious: Yes (Hospitalization, Other)
  Sender: FDA-Public Use
  Company Number: 2009JP005559

PATIENT
  Age: 61 Year
  Sex: Female

DRUGS (2)
  1. PROGRAF [Suspect]
     Active Substance: TACROLIMUS\TACROLIMUS ANHYDROUS
     Indication: RHEUMATOID ARTHRITIS
     Dates: end: 2009
  2. ENBREL (ETANERCEPT (GENETICAL RECOMBINATION) [Concomitant]

REACTIONS (2)
  - Lung infection [None]
  - Septic shock [None]

NARRATIVE: CASE EVENT DATE: 200903
